FAERS Safety Report 8553190-3 (Version None)
Quarter: 2012Q3

REPORT INFORMATION
  Report Type: 
  Country: None (occurrence: None)
  Receive Date: 20120725
  Receipt Date: 20120725
  Transmission Date: 20120928
  Serious: No
  Sender: FDA-Public Use
  Company Number: None

PATIENT
  Sex: Male

DRUGS (2)
  1. PAXIL [Suspect]
     Indication: ANXIETY
     Dosage: PAXIL CR.25 MG 1  IN THE MORNING
  2. PAXIL [Suspect]
     Indication: OBSESSIVE-COMPULSIVE DISORDER
     Dosage: PAXIL CR.25 MG 1  IN THE MORNING

REACTIONS (1)
  - SEXUAL DYSFUNCTION [None]
